FAERS Safety Report 6316942-6 (Version None)
Quarter: 2009Q3

REPORT INFORMATION
  Report Type: 
  Country: None (occurrence: None)
  Receive Date: 20090820
  Receipt Date: 20090812
  Transmission Date: 20100115
  Serious: Yes (Other)
  Sender: FDA-Public Use
  Company Number: PHHY2009BR27129

PATIENT
  Age: 70 Year
  Sex: Male

DRUGS (5)
  1. COMTAN [Suspect]
     Indication: PARKINSON'S DISEASE
     Dosage: 200 MG, QID
     Dates: start: 20080701
  2. AMANTADINE HCL [Suspect]
     Indication: PARKINSON'S DISEASE
     Dosage: 100 MG, BID
     Dates: start: 20080701
  3. PRAMIPEXOLE DIHYDROCHLORIDE [Suspect]
     Indication: PARKINSON'S DISEASE
     Dosage: 1 MG, QID
     Dates: start: 20080701
  4. PROLOPA [Suspect]
     Indication: PARKINSON'S DISEASE
     Dosage: 4 CAPSULES DAILY
  5. PROLOPA [Suspect]
     Dosage: 4.5 TABLETS DAILY
     Dates: start: 20080701

REACTIONS (4)
  - DERMATITIS PSORIASIFORM [None]
  - DRUG ERUPTION [None]
  - PERIVASCULAR DERMATITIS [None]
  - RASH PRURITIC [None]
